FAERS Safety Report 5080016-5 (Version None)
Quarter: 2006Q3

REPORT INFORMATION
  Report Type: 
  Country: None (occurrence: None)
  Receive Date: 20060815
  Receipt Date: 20060706
  Transmission Date: 20061208
  Serious: Yes (Disabling, Other)
  Sender: FDA-Public Use
  Company Number: PHFR2006GB02172

PATIENT
  Age: 32 Year
  Sex: Female

DRUGS (3)
  1. PAMIDRONATE DISODIUM [Suspect]
     Indication: COMPLEX REGIONAL PAIN SYNDROME
     Dosage: 90 MG, ONCE
     Route: 042
     Dates: start: 20060410, end: 20060410
  2. OMEPRAZOLE [Concomitant]
     Indication: DYSPEPSIA
     Dosage: 20 MG, QD
     Route: 065
     Dates: start: 20050101
  3. PAROXETINE HCL [Concomitant]
     Indication: PANIC ATTACK
     Dosage: 40 MG, QD
     Route: 065
     Dates: start: 19970101

REACTIONS (7)
  - ABORTION SPONTANEOUS [None]
  - BACK PAIN [None]
  - BLOOD ALKALINE PHOSPHATASE INCREASED [None]
  - BONE PAIN [None]
  - DRUG EXPOSURE DURING PREGNANCY [None]
  - GINGIVAL PAIN [None]
  - PAINFUL RESPIRATION [None]
